FAERS Safety Report 5019832-4 (Version None)
Quarter: 2006Q2

REPORT INFORMATION
  Report Type: 
  Country: None (occurrence: None)
  Receive Date: 20060601
  Receipt Date: 20060522
  Transmission Date: 20061013
  Serious: Yes (Hospitalization)
  Sender: FDA-Public Use
  Company Number: 2006067289

PATIENT
  Age: 40 Year
  Sex: Female

DRUGS (6)
  1. TAHOR (ATORVASTATIN) [Suspect]
     Indication: ILL-DEFINED DISORDER
     Dosage: ORAL
     Route: 048
     Dates: start: 20051101, end: 20060201
  2. CHLOROQUINE PHOSPHATE [Suspect]
     Indication: ILL-DEFINED DISORDER
     Dosage: 3 DOSE FORMS (DAILY) ORAL
     Route: 048
     Dates: start: 20050101, end: 20060414
  3. KARDEGIC (ACETYLSALICYLATE LYSINE) [Concomitant]
  4. COVERSYL (PERINDOPRIL) [Concomitant]
  5. PLAVIX [Concomitant]
  6. BISOPROLOL FUMARATE [Concomitant]

REACTIONS (3)
  - ASTHENIA [None]
  - GAIT DISTURBANCE [None]
  - PROTEIN TOTAL INCREASED [None]
